FAERS Safety Report 13776137 (Version 3)
Quarter: 2017Q3

REPORT INFORMATION
  Report Type: Spontaneous
  Country: RU (occurrence: RU)
  Receive Date: 20170721
  Receipt Date: 20170801
  Transmission Date: 20171127
  Serious: Yes (Other)
  Sender: FDA-Public Use
  Company Number: RU-ASTRAZENECA-2017SE73379

PATIENT
  Age: 60 Year
  Sex: Female
  Weight: 95 kg

DRUGS (5)
  1. FORXIGA [Suspect]
     Active Substance: DAPAGLIFLOZIN
     Indication: TYPE 2 DIABETES MELLITUS
     Route: 048
     Dates: start: 2016, end: 201706
  2. CONCOR [Concomitant]
     Active Substance: BISOPROLOL FUMARATE
     Indication: CARDIOVASCULAR DISORDER
  3. MILDRONATE [Concomitant]
     Active Substance: MELDONIUM
     Indication: CARDIOVASCULAR DISORDER
  4. CARVEDILOL. [Concomitant]
     Active Substance: CARVEDILOL
     Indication: CARDIOVASCULAR DISORDER
  5. INSULIN [Concomitant]
     Active Substance: INSULIN NOS

REACTIONS (3)
  - Wound infection [Recovered/Resolved]
  - Microbiology test abnormal [Unknown]
  - Pruritus genital [Recovered/Resolved]

NARRATIVE: CASE EVENT DATE: 201612
